FAERS Safety Report 5946600-9 (Version None)
Quarter: 2008Q4

REPORT INFORMATION
  Report Type: 
  Country: None (occurrence: None)
  Receive Date: 20081110
  Receipt Date: 20081030
  Transmission Date: 20090506
  Serious: Yes (Hospitalization)
  Sender: FDA-Public Use
  Company Number: AT-ROCHE-594346

PATIENT
  Age: 73 Year
  Sex: Female
  Weight: 65 kg

DRUGS (3)
  1. CAPECITABINE [Suspect]
     Route: 048
  2. IRINOTECAN HYDROCHLORIDE [Suspect]
     Route: 065
  3. AVASTIN [Concomitant]

REACTIONS (4)
  - DEHYDRATION [None]
  - DIARRHOEA [None]
  - HYPOTONIA [None]
  - RENAL FAILURE [None]
